FAERS Safety Report 4422490-0 (Version None)
Quarter: 2004Q3

REPORT INFORMATION
  Report Type: 
  Country: None (occurrence: None)
  Receive Date: 20040810
  Receipt Date: 20040802
  Transmission Date: 20050211
  Serious: Yes (Death)
  Sender: FDA-Public Use
  Company Number: PHBS2004FR10486

PATIENT
  Age: 38 Year
  Sex: Male

DRUGS (4)
  1. CARBAMAZEPINE [Suspect]
     Indication: PSYCHOTIC DISORDER
     Dosage: 600 MG/D
  2. SULTOPRIDE [Suspect]
     Dosage: 800 MG/D
  3. HALOPERIDOL [Suspect]
     Dosage: 30 MG/D
  4. CLORAZEPATE DIPOTASSIUM [Suspect]
     Dosage: 25-100 MG/D

REACTIONS (3)
  - ARRHYTHMIA [None]
  - CONGESTIVE CARDIOMYOPATHY [None]
  - SUDDEN DEATH [None]
